FAERS Safety Report 5996851-2 (Version None)
Quarter: 2008Q4

REPORT INFORMATION
  Report Type: 
  Country: None (occurrence: None)
  Receive Date: 20081212
  Receipt Date: 20081028
  Transmission Date: 20090506
  Serious: No
  Sender: FDA-Public Use
  Company Number: US-ABBOTT-08P-163-0484170-00

PATIENT
  Sex: Male
  Weight: 45.4 kg

DRUGS (2)
  1. HUMIRA [Suspect]
     Indication: CROHN'S DISEASE
     Dates: start: 20081013, end: 20081013
  2. HUMIRA [Suspect]
     Dates: start: 20081028

REACTIONS (1)
  - WRONG TECHNIQUE IN DRUG USAGE PROCESS [None]
